FAERS Safety Report 7077374 (Version 2)
Quarter: 2014Q3

REPORT INFORMATION
  Report Type: Spontaneous
  Country: US (occurrence: None)
  Receive Date: 20090803
  Receipt Date: 20140922
  Transmission Date: 20150326
  Serious: Yes (Hospitalization, Other)
  Sender: FDA-Public Use
  Company Number: 2009S1005967

PATIENT
  Age: 67 Year
  Sex: Female
  Weight: 72.12 kg

DRUGS (9)
  1. ZYRTEC [Concomitant]
     Active Substance: CETIRIZINE HYDROCHLORIDE
  2. ACIPHEX [Concomitant]
     Active Substance: RABEPRAZOLE SODIUM
  3. ZOCOR [Concomitant]
     Active Substance: SIMVASTATIN
  4. PHOSPHO-SODA [Suspect]
     Active Substance: SODIUM PHOSPHATE, DIBASIC\SODIUM PHOSPHATE, MONOBASIC
     Indication: COLONOSCOPY
     Dosage: 2 IN 24 HOURS, ORAL
     Route: 048
     Dates: start: 20080709, end: 20080709
  5. DIOVAN [Concomitant]
     Active Substance: VALSARTAN
  6. DULCOLAX [Suspect]
     Active Substance: BISACODYL OR DOCUSATE SODIUM
     Indication: COLONOSCOPY
     Dosage: 2 IN 24 HOURS
     Dates: start: 20080709, end: 20080709
  7. ASPIRIN. [Concomitant]
     Active Substance: ASPIRIN
  8. GLUCOPHAGE XR (METFORMIN HYDROCHLORIDE) [Concomitant]
  9. NORVASC [Concomitant]
     Active Substance: AMLODIPINE BESYLATE

REACTIONS (6)
  - Nausea [None]
  - Decreased appetite [None]
  - Renal failure acute [None]
  - Fatigue [None]
  - Nephrocalcinosis [None]
  - Renal failure chronic [None]

NARRATIVE: CASE EVENT DATE: 20080820
